FAERS Safety Report 9875354 (Version 1)
Quarter: 2014Q1

REPORT INFORMATION
  Report Type: Spontaneous
  Country: US (occurrence: None)
  Receive Date: 20140205
  Receipt Date: 20140205
  Transmission Date: 20141002
  Serious: Yes (Death)
  Sender: FDA-Public Use
  Company Number: None

PATIENT
  Age: 62 Year
  Sex: Male
  Weight: 77.11 kg

DRUGS (34)
  1. ZANAMIVIR [Suspect]
     Indication: PNEUMONIA INFLUENZAL
     Dosage: LADING DOSE 600 MG, THEN 400?BID?INTRAVENOUS
     Route: 042
     Dates: start: 20140128, end: 20140202
  2. ACYCLOVIR [Concomitant]
  3. CALCIUM CARBONATE [Concomitant]
  4. FENTANYL [Concomitant]
  5. GABAPENTIN [Concomitant]
  6. VORICONAZOLE [Concomitant]
  7. ALBUTEROL/IPRATROPIUM [Concomitant]
  8. MEROPENEM [Concomitant]
  9. OXYMETAZOLINE [Concomitant]
  10. CHLORHEXIDINE [Concomitant]
  11. PANTOPRAZOLE [Concomitant]
  12. METHYLPRED [Concomitant]
  13. VANCOMYCIN [Concomitant]
  14. HEPARIN (PORCINE) [Concomitant]
  15. POLYETHYLENE GLYCOL [Concomitant]
  16. DOCUSATE SODIUM [Concomitant]
  17. CALCIUM GLUCONATE [Concomitant]
  18. MAGNESIUM SULFATE [Concomitant]
  19. AMIODARONE [Concomitant]
  20. METOPROL;.LTARTRATE [Concomitant]
  21. GABAPENTIN [Concomitant]
  22. FUROSEMIDE [Concomitant]
  23. FUROSEMIDE OP [Concomitant]
  24. ALBUMIN [Concomitant]
  25. METOPROLOL TARTRATE [Concomitant]
  26. RINGERS SOLUTION,LACTATED [Concomitant]
  27. NOREPINEPHRINE [Concomitant]
  28. PROPOFOL [Concomitant]
  29. CISATRACURIUM [Concomitant]
  30. FENTANYL [Concomitant]
  31. INSULIN [Concomitant]
  32. SODIUM BICARB [Concomitant]
  33. AMIODARONE [Concomitant]
  34. MORPHINE [Concomitant]

REACTIONS (1)
  - General physical health deterioration [None]
